FAERS Safety Report 12201300 (Version 1)
Quarter: 2016Q1

REPORT INFORMATION
  Report Type: Spontaneous
  Country: US (occurrence: US)
  Receive Date: 20160322
  Receipt Date: 20160322
  Transmission Date: 20160526
  Serious: No
  Sender: FDA-Public Use
  Company Number: US-SA-2015SA046158

PATIENT
  Age: 63 Year
  Sex: Female

DRUGS (2)
  1. BACTROBAN [Concomitant]
     Active Substance: MUPIROCIN\MUPIROCIN CALCIUM
     Route: 065
  2. NASACORT ALLERGY 24HR [Suspect]
     Active Substance: TRIAMCINOLONE ACETONIDE
     Indication: SINUS CONGESTION
     Dosage: TAKEN FORM-OVER A YEAR AGO 2014?DOSE AND DAILY DOSE-1 SQUIRT EACH NOSTRIL
     Route: 045

REACTIONS (3)
  - Candida infection [Not Recovered/Not Resolved]
  - Throat irritation [Not Recovered/Not Resolved]
  - Tongue discolouration [Not Recovered/Not Resolved]
